FAERS Safety Report 12167920 (Version 1)
Quarter: 2016Q1

REPORT INFORMATION
  Report Type: Spontaneous
  Country: PH (occurrence: PH)
  Receive Date: 20160310
  Receipt Date: 20160310
  Transmission Date: 20160526
  Serious: Yes (Other)
  Sender: FDA-Public Use
  Company Number: PH-PFIZER INC-2015177698

PATIENT
  Age: 69 Year
  Sex: Female

DRUGS (1)
  1. PANTOLOC [Suspect]
     Active Substance: PANTOPRAZOLE SODIUM
     Indication: PROPHYLAXIS
     Dosage: 1 DF, 1X/DAY (ONE TABLET ONCE DAILY BEFORE BREAKFAST)
     Route: 048
     Dates: start: 20141123

REACTIONS (1)
  - Faecaloma [Unknown]

NARRATIVE: CASE EVENT DATE: 20141124
